FAERS Safety Report 4325185-7 (Version None)
Quarter: 2004Q1

REPORT INFORMATION
  Report Type: 
  Country: None (occurrence: None)
  Receive Date: 20040324
  Receipt Date: 20040310
  Transmission Date: 20041129
  Serious: Yes (Other)
  Sender: FDA-Public Use
  Company Number: ENT 2004-0057(0)

PATIENT

DRUGS (1)
  1. COMTAN [Suspect]
     Indication: PARKINSON'S DISEASE

REACTIONS (2)
  - CARDIAC DISORDER [None]
  - CHEST PAIN [None]
